FAERS Safety Report 16857648 (Version 1)
Quarter: 2019Q3

REPORT INFORMATION
  Report Type: Spontaneous
  Country: KR (occurrence: KR)
  Receive Date: 20190926
  Receipt Date: 20190926
  Transmission Date: 20191005
  Serious: Yes (Other)
  Sender: FDA-Public Use
  Company Number: KR-BAXTER-2019BAX018759

PATIENT
  Sex: Female
  Weight: 40.45 kg

DRUGS (17)
  1. CISPLATIN. [Suspect]
     Active Substance: CISPLATIN
     Indication: PLEURAL EFFUSION
     Dosage: FOUR CYCLES
     Route: 065
     Dates: start: 20150514, end: 20150821
  2. CISPLATIN. [Suspect]
     Active Substance: CISPLATIN
     Indication: MALIGNANT NEOPLASM PROGRESSION
  3. ENDOXAN 500MG INJ. (CYCLOPHOSPHAMIDE) [Suspect]
     Active Substance: CYCLOPHOSPHAMIDE
     Indication: THYMOMA MALIGNANT
     Dosage: FIVE CYCLES
     Route: 065
     Dates: start: 20161221, end: 20170510
  4. ENDOXAN 500MG INJ. (CYCLOPHOSPHAMIDE) [Suspect]
     Active Substance: CYCLOPHOSPHAMIDE
     Indication: PLEURAL EFFUSION
     Dosage: FOUR CYCLES
     Route: 065
     Dates: start: 20150514, end: 20150821
  5. CISPLATIN. [Suspect]
     Active Substance: CISPLATIN
     Indication: THYMOMA MALIGNANT
     Dosage: FIVE CYCLES
     Route: 065
     Dates: start: 20161221, end: 20170510
  6. CODEINE PHOSPHATE [Concomitant]
     Active Substance: CODEINE PHOSPHATE
     Indication: COUGH
     Route: 048
     Dates: start: 201702
  7. ENDOXAN 500MG INJ. (CYCLOPHOSPHAMIDE) [Suspect]
     Active Substance: CYCLOPHOSPHAMIDE
     Indication: MALIGNANT NEOPLASM PROGRESSION
  8. DOXORUBICIN [Suspect]
     Active Substance: DOXORUBICIN
     Indication: PLEURAL EFFUSION
     Dosage: FOUR CYCLES
     Route: 065
     Dates: start: 20150514, end: 20150821
  9. CISPLATIN. [Suspect]
     Active Substance: CISPLATIN
     Indication: THYMOMA MALIGNANT
     Dosage: SIX CYCLES
     Route: 065
     Dates: start: 20130605, end: 20130926
  10. PEMBROLIZUMAB. [Suspect]
     Active Substance: PEMBROLIZUMAB
     Indication: THYMOMA MALIGNANT
  11. GENEXOL PM [Suspect]
     Active Substance: PACLITAXEL
     Indication: THYMOMA MALIGNANT
     Dosage: SIX CYCLES
     Route: 065
     Dates: start: 20130605, end: 20130926
  12. PEMBROLIZUMAB. [Suspect]
     Active Substance: PEMBROLIZUMAB
     Indication: PLEURAL EFFUSION
     Dosage: 12 CYCLES
     Route: 065
     Dates: start: 20160328, end: 20161122
  13. GLIMEPIRIDE. [Concomitant]
     Active Substance: GLIMEPIRIDE
     Indication: HYPERGLYCAEMIA
     Route: 048
     Dates: start: 2013
  14. SITAGLIPTIN [Concomitant]
     Active Substance: SITAGLIPTIN
     Indication: HYPERGLYCAEMIA
     Route: 048
     Dates: start: 2013
  15. DOXORUBICIN [Suspect]
     Active Substance: DOXORUBICIN
     Indication: MALIGNANT NEOPLASM PROGRESSION
  16. DOXORUBICIN [Suspect]
     Active Substance: DOXORUBICIN
     Indication: THYMOMA MALIGNANT
     Dosage: FIVE CYCLES
     Route: 065
     Dates: start: 20161221, end: 20170510
  17. PEMBROLIZUMAB. [Suspect]
     Active Substance: PEMBROLIZUMAB
     Indication: MALIGNANT NEOPLASM PROGRESSION

REACTIONS (2)
  - Malignant neoplasm progression [Unknown]
  - Vomiting [Unknown]
